FAERS Safety Report 15332824 (Version 3)
Quarter: 2020Q2

REPORT INFORMATION
  Report Type: Report from Study
  Country: US (occurrence: US)
  Receive Date: 20180830
  Receipt Date: 20200520
  Transmission Date: 20200713
  Serious: Yes (Hospitalization)
  Sender: FDA-Public Use
  Company Number: US-ROCHE-2177023

PATIENT
  Age: 65 Year
  Sex: Female
  Weight: 70.37 kg

DRUGS (1)
  1. OCREVUS [Suspect]
     Active Substance: OCRELIZUMAB
     Indication: RELAPSING MULTIPLE SCLEROSIS
     Route: 042
     Dates: start: 201708, end: 201912

REACTIONS (10)
  - Pain [Unknown]
  - Infection [Unknown]
  - Infective glossitis [Recovering/Resolving]
  - Conjunctivitis [Recovered/Resolved]
  - Asthma [Not Recovered/Not Resolved]
  - Localised infection [Recovering/Resolving]
  - Body height decreased [Not Recovered/Not Resolved]
  - Immunosuppression [Not Recovered/Not Resolved]
  - Weight decreased [Not Recovered/Not Resolved]
  - Scoliosis [Not Recovered/Not Resolved]

NARRATIVE: CASE EVENT DATE: 201801
